FAERS Safety Report 24062671 (Version 3)
Quarter: 2024Q4

REPORT INFORMATION
  Report Type: Report from Study
  Country: US (occurrence: US)
  Receive Date: 20240708
  Receipt Date: 20241108
  Transmission Date: 20250115
  Serious: Yes (Other)
  Sender: ABBVIE
  Company Number: US-ABBVIE-5826303

PATIENT
  Age: 62 Year
  Sex: Female

DRUGS (1)
  1. RINVOQ [Suspect]
     Active Substance: UPADACITINIB
     Indication: Product used for unknown indication
     Route: 048
     Dates: start: 20230214

REACTIONS (4)
  - Carpal tunnel syndrome [Unknown]
  - Renal disorder [Unknown]
  - Condition aggravated [Unknown]
  - Inflammation [Unknown]

NARRATIVE: CASE EVENT DATE: 20240101
